FAERS Safety Report 9633156 (Version 2)
Quarter: 2014Q1

REPORT INFORMATION
  Report Type: Spontaneous
  Country: IT (occurrence: IT)
  Receive Date: 20131020
  Receipt Date: 20140121
  Transmission Date: 20141002
  Serious: Yes (Life-Threatening)
  Sender: FDA-Public Use
  Company Number: IT-JNJFOC-20131009323

PATIENT
  Age: 54 Year
  Sex: Female

DRUGS (3)
  1. IBUPROFEN UNSPECIFIED [Suspect]
     Route: 048
  2. IBUPROFEN UNSPECIFIED [Suspect]
     Indication: OSTEOARTHRITIS
     Route: 048
     Dates: start: 20130703, end: 20131003
  3. NIMESULIDE [Suspect]
     Indication: NECK PAIN
     Route: 048
     Dates: start: 20130603, end: 20131003

REACTIONS (4)
  - Bone marrow failure [Recovering/Resolving]
  - Metabolic acidosis [Recovering/Resolving]
  - Anaemia [Recovering/Resolving]
  - Gastrointestinal ulcer [Recovering/Resolving]
